FAERS Safety Report 16628843 (Version 2)
Quarter: 2019Q3

REPORT INFORMATION
  Report Type: Spontaneous
  Country: US (occurrence: US)
  Receive Date: 20190725
  Receipt Date: 20190816
  Transmission Date: 20191004
  Serious: No
  Sender: FDA-Public Use
  Company Number: US-VIFOR (INTERNATIONAL) INC.-VIT-2019-06668

PATIENT
  Sex: Female
  Weight: 101.7 kg

DRUGS (6)
  1. VELTASSA [Suspect]
     Active Substance: PATIROMER
     Indication: HYPERKALAEMIA
     Route: 048
     Dates: start: 20190525
  2. VELTASSA [Suspect]
     Active Substance: PATIROMER
     Route: 048
     Dates: start: 2019
  3. LISINOPRIL. [Concomitant]
     Active Substance: LISINOPRIL
  4. CHLORTHALIDONE. [Concomitant]
     Active Substance: CHLORTHALIDONE
  5. VELTASSA [Suspect]
     Active Substance: PATIROMER
     Dates: start: 201903
  6. ROSUVASTATIN. [Concomitant]
     Active Substance: ROSUVASTATIN

REACTIONS (2)
  - Muscle spasms [Unknown]
  - Off label use [Unknown]

NARRATIVE: CASE EVENT DATE: 2019
